FAERS Safety Report 8585311-0 (Version None)
Quarter: 2012Q3

REPORT INFORMATION
  Report Type: 
  Country: None (occurrence: None)
  Receive Date: 20120810
  Receipt Date: 20120731
  Transmission Date: 20120928
  Serious: Yes (Hospitalization)
  Sender: FDA-Public Use
  Company Number: US-BAYER-2012-078695

PATIENT
  Age: 31 Year
  Sex: Female
  Weight: 81.8 kg

DRUGS (7)
  1. YAZ [Suspect]
     Indication: VAGINAL HAEMORRHAGE
  2. TYLENOL [Concomitant]
  3. DEPO-PROVERA [Concomitant]
  4. XANAX [Concomitant]
  5. ALPRAZOLAM [Concomitant]
     Indication: ANXIETY
     Dosage: 0.25 MG, UNK
  6. TORADOL [Concomitant]
  7. PROVERA [Concomitant]
     Dosage: 10 MG, DAILY
     Route: 048

REACTIONS (2)
  - PULMONARY EMBOLISM [None]
  - THROMBOPHLEBITIS SUPERFICIAL [None]
